FAERS Safety Report 23800730 (Version 1)
Quarter: 2024Q2

REPORT INFORMATION
  Report Type: Spontaneous
  Country: US (occurrence: None)
  Receive Date: 20240429
  Receipt Date: 20240429
  Transmission Date: 20240716
  Serious: Yes (Hospitalization)
  Sender: FDA-Public Use
  Company Number: None

PATIENT
  Age: 61 Year
  Sex: Male

DRUGS (1)
  1. NUPLAZID [Suspect]
     Active Substance: PIMAVANSERIN TARTRATE

REACTIONS (4)
  - Chest pain [None]
  - Hypertension [None]
  - Renal disorder [None]
  - Cardiac disorder [None]

NARRATIVE: CASE EVENT DATE: 20240426
